FAERS Safety Report 6534969-6 (Version None)
Quarter: 2010Q1

REPORT INFORMATION
  Report Type: 
  Country: None (occurrence: None)
  Receive Date: 20100111
  Receipt Date: 20100111
  Transmission Date: 20100710
  Serious: Yes (Hospitalization)
  Sender: FDA-Public Use
  Company Number: None

PATIENT
  Age: 64 Year
  Sex: Male
  Weight: 63.05 kg

DRUGS (1)
  1. IBUPROFEN [Suspect]
     Indication: RENAL IMPAIRMENT
     Dosage: 600 MG TID PO
     Route: 048
     Dates: start: 20091002, end: 20091006

REACTIONS (1)
  - RENAL IMPAIRMENT [None]
